FAERS Safety Report 17864376 (Version 1)
Quarter: 2020Q2

REPORT INFORMATION
  Report Type: Spontaneous
  Country: FR (occurrence: FR)
  Receive Date: 20200605
  Receipt Date: 20200605
  Transmission Date: 20200714
  Serious: Yes (Other)
  Sender: FDA-Public Use
  Company Number: FR-SUN PHARMACEUTICAL INDUSTRIES LTD-2020RR-249363

PATIENT
  Age: 74 Year
  Sex: Male

DRUGS (2)
  1. SERTRALINE [Suspect]
     Active Substance: SERTRALINE HYDROCHLORIDE
     Indication: FRONTOTEMPORAL DEMENTIA
     Dosage: HIGH-DOSE TREATMENT
     Route: 065
  2. CYAMEMAZINE [Suspect]
     Active Substance: CYAMEMAZINE
     Indication: FRONTOTEMPORAL DEMENTIA
     Dosage: HIGH-DOSE TREATMENT
     Route: 065

REACTIONS (1)
  - Therapeutic product effect incomplete [Unknown]
